FAERS Safety Report 18084654 (Version 1)
Quarter: 2020Q3

REPORT INFORMATION
  Report Type: Spontaneous
  Country: CN (occurrence: CN)
  Receive Date: 20200729
  Receipt Date: 20200729
  Transmission Date: 20201103
  Serious: Yes (Other)
  Sender: FDA-Public Use
  Company Number: CN-ROCHE-2647754

PATIENT
  Age: 58 Year
  Sex: Male

DRUGS (2)
  1. TECENTRIQ [Suspect]
     Active Substance: ATEZOLIZUMAB
     Indication: SMALL CELL LUNG CANCER EXTENSIVE STAGE
     Dosage: 15 MAY 2020 AND 18 JUN 2020
     Route: 065
     Dates: start: 20190515
  2. ETOPOSIDE. [Concomitant]
     Active Substance: ETOPOSIDE
     Indication: SMALL CELL LUNG CANCER EXTENSIVE STAGE
     Dosage: NEXT DOSE ON 18/JUN/2020
     Dates: start: 20190515, end: 20190928

REACTIONS (6)
  - Cholecystitis acute [Unknown]
  - Oedema peripheral [Unknown]
  - Asphyxia [Unknown]
  - Myelosuppression [Unknown]
  - Cholelithiasis [Unknown]
  - Asthma [Unknown]

NARRATIVE: CASE EVENT DATE: 20200604
